FAERS Safety Report 6712987-2 (Version None)
Quarter: 2010Q2

REPORT INFORMATION
  Report Type: 
  Country: None (occurrence: None)
  Receive Date: 20100505
  Receipt Date: 20100505
  Transmission Date: 20101027
  Serious: Yes (Other)
  Sender: FDA-Public Use
  Company Number: None

PATIENT
  Sex: Male

DRUGS (2)
  1. MORPHINE [Suspect]
     Indication: PROCEDURAL PAIN
     Dosage: 2MG Q10MIN IV BOLUS
     Route: 040
  2. VICODIN [Suspect]
     Dosage: 5/500 Q4HRS PO
     Route: 048

REACTIONS (2)
  - BLOOD PRESSURE DECREASED [None]
  - SOMNOLENCE [None]
